FAERS Safety Report 12788757 (Version 1)
Quarter: 2016Q3

REPORT INFORMATION
  Report Type: Spontaneous
  Country: US (occurrence: US)
  Receive Date: 20160928
  Receipt Date: 20160928
  Transmission Date: 20161109
  Serious: No
  Sender: FDA-Public Use
  Company Number: US-ASTRAZENECA-2016SE94383

PATIENT
  Age: 21213 Day
  Sex: Female
  Weight: 52.6 kg

DRUGS (9)
  1. PULMICORT FLEXHALER [Suspect]
     Active Substance: BUDESONIDE
     Indication: CHRONIC OBSTRUCTIVE PULMONARY DISEASE
     Dosage: 90 MCG ONE PUFF TWICE PER DAY
     Route: 055
     Dates: start: 201602
  2. ASPIRIN. [Concomitant]
     Active Substance: ASPIRIN
     Indication: CARDIAC DISORDER
     Route: 048
     Dates: start: 2014
  3. TYLENOL [Concomitant]
     Active Substance: ACETAMINOPHEN
     Indication: PAIN
     Dosage: 500.0MG UNKNOWN
     Route: 048
  4. METOPOLOL SUCC [Suspect]
     Active Substance: METOPROLOL SUCCINATE
     Indication: PALPITATIONS
     Route: 048
     Dates: start: 2012
  5. GABAPENTIN. [Concomitant]
     Active Substance: GABAPENTIN
     Indication: PAIN
     Dosage: 600.0MG UNKNOWN
     Route: 048
  6. FLONAISE [Concomitant]
     Dosage: 2, DAILY
     Route: 045
     Dates: start: 201602
  7. VERAPAMIL [Concomitant]
     Active Substance: VERAPAMIL HYDROCHLORIDE
     Indication: PALPITATIONS
     Route: 048
     Dates: start: 2014
  8. XOPENEX [Concomitant]
     Active Substance: LEVALBUTEROL HYDROCHLORIDE
     Dosage: 2
     Route: 055
     Dates: start: 201602
  9. MULTIVITAMIN [Concomitant]
     Active Substance: VITAMINS
     Dosage: 1, DAILY
     Route: 048

REACTIONS (2)
  - Feeling abnormal [Unknown]
  - Intentional product misuse [Unknown]

NARRATIVE: CASE EVENT DATE: 20160815
